FAERS Safety Report 17645806 (Version 6)
Quarter: 2020Q2

REPORT INFORMATION
  Report Type: Report from Study
  Country: ES (occurrence: ES)
  Receive Date: 20200408
  Receipt Date: 20200512
  Transmission Date: 20200713
  Serious: Yes (Hospitalization)
  Sender: FDA-Public Use
  Company Number: ES-EISAI MEDICAL RESEARCH-EC-2020-072845

PATIENT
  Age: 68 Year
  Sex: Female
  Weight: 84.6 kg

DRUGS (15)
  1. ALBUTEROL. [Concomitant]
     Active Substance: ALBUTEROL
     Dates: start: 20191101
  2. ENALAPRIL MALEATE. [Concomitant]
     Active Substance: ENALAPRIL MALEATE
     Dates: start: 20141027
  3. LORAZEPAM. [Concomitant]
     Active Substance: LORAZEPAM
     Dates: start: 20190902
  4. PEMBROLIZUMAB. [Suspect]
     Active Substance: PEMBROLIZUMAB
     Route: 041
     Dates: start: 20200311, end: 20200311
  5. SERETIDE [Concomitant]
     Active Substance: FLUTICASONE PROPIONATE\SALMETEROL XINAFOATE
     Dates: start: 20150305
  6. FOLIC ACID. [Concomitant]
     Active Substance: FOLIC ACID
     Dates: start: 20181115
  7. PEMBROLIZUMAB. [Suspect]
     Active Substance: PEMBROLIZUMAB
     Route: 041
     Dates: start: 20200401
  8. FLUOXETINE [Concomitant]
     Active Substance: FLUOXETINE HYDROCHLORIDE
     Dates: start: 20190902
  9. IRON [Concomitant]
     Active Substance: IRON
     Dates: start: 20191016
  10. LENVATINIB [Suspect]
     Active Substance: LENVATINIB
     Indication: ENDOMETRIAL CANCER
     Route: 048
     Dates: start: 20191211, end: 20200324
  11. HYDROCHLOROTHIAZIDE. [Concomitant]
     Active Substance: HYDROCHLOROTHIAZIDE
     Dates: start: 20141027
  12. LENVATINIB [Suspect]
     Active Substance: LENVATINIB
     Route: 048
     Dates: start: 20200401
  13. PEMBROLIZUMAB. [Suspect]
     Active Substance: PEMBROLIZUMAB
     Indication: ENDOMETRIAL CANCER
     Route: 041
     Dates: start: 20191211, end: 20200219
  14. ACETAMINOPHEN. [Concomitant]
     Active Substance: ACETAMINOPHEN
     Dates: start: 20181022
  15. OMEPRAZOLE. [Concomitant]
     Active Substance: OMEPRAZOLE
     Dates: start: 20191016

REACTIONS (1)
  - Diarrhoea [Recovered/Resolved]

NARRATIVE: CASE EVENT DATE: 20200317
